FAERS Safety Report 20438785 (Version 1)
Quarter: 2022Q1

REPORT INFORMATION
  Report Type: Spontaneous
  Country: US (occurrence: None)
  Receive Date: 20220203
  Receipt Date: 20220203
  Transmission Date: 20220423
  Serious: Yes (unspecified)
  Sender: FDA-Public Use
  Company Number: None

PATIENT
  Age: 51 Year
  Sex: Female
  Weight: 99 kg

DRUGS (14)
  1. TESTOSTERONE [Suspect]
     Active Substance: TESTOSTERONE
     Indication: Menopause
     Route: 058
     Dates: start: 20220114
  2. NP THYROID [Concomitant]
     Active Substance: LEVOTHYROXINE\LIOTHYRONINE
  3. VITAMINS [Concomitant]
     Active Substance: VITAMINS
  4. B1 [Concomitant]
  5. PYRIDOXINE HYDROCHLORIDE [Concomitant]
     Active Substance: PYRIDOXINE HYDROCHLORIDE
  6. B9 [Concomitant]
  7. VITAMIN B12 [Concomitant]
     Active Substance: CYANOCOBALAMIN
  8. FISH OIL [Concomitant]
     Active Substance: FISH OIL
  9. VITAMIN D NOS [Concomitant]
     Active Substance: VITAMIN D NOS
  10. UBIQUINOL [Concomitant]
     Active Substance: UBIQUINOL
  11. DIM [Concomitant]
  12. Calcium-d-glutarate [Concomitant]
  13. Megasporebiotic [Concomitant]
  14. L Reuteri Probiotic [Concomitant]

REACTIONS (11)
  - Adverse drug reaction [None]
  - Feeling abnormal [None]
  - Blood glucose fluctuation [None]
  - Anti-thyroid antibody increased [None]
  - Lipids increased [None]
  - Rash pruritic [None]
  - Urticaria [None]
  - Pruritus [None]
  - Sleep disorder [None]
  - Immunosuppression [None]
  - General physical health deterioration [None]

NARRATIVE: CASE EVENT DATE: 20220123
